FAERS Safety Report 17206256 (Version 2)
Quarter: 2019Q4

REPORT INFORMATION
  Report Type: Spontaneous
  Country: US (occurrence: US)
  Receive Date: 20191227
  Receipt Date: 20191227
  Transmission Date: 20200122
  Serious: Yes (Life-Threatening, Hospitalization, Other)
  Sender: FDA-Public Use
  Company Number: US-SHIRE-US201945003

PATIENT
  Age: 67 Year
  Sex: Female

DRUGS (1)
  1. AGRYLIN [Suspect]
     Active Substance: ANAGRELIDE HYDROCHLORIDE
     Indication: THROMBOCYTOSIS
     Dosage: 0.5 MILLIGRAM, 3X/DAY:TID
     Route: 065

REACTIONS (4)
  - Transient ischaemic attack [Unknown]
  - Atrial fibrillation [Unknown]
  - Anxiety [Unknown]
  - Product availability issue [Unknown]
